FAERS Safety Report 6681917-4 (Version None)
Quarter: 2010Q2

REPORT INFORMATION
  Report Type: 
  Country: None (occurrence: None)
  Receive Date: 20100409
  Receipt Date: 20100402
  Transmission Date: 20101027
  Serious: Yes (Hospitalization)
  Sender: FDA-Public Use
  Company Number: KR-1181456

PATIENT
  Age: 45 Year
  Sex: Male

DRUGS (1)
  1. DORZOLAMIDE [Suspect]
     Dosage: OPHTHALMIC
     Route: 047

REACTIONS (8)
  - ALANINE AMINOTRANSFERASE INCREASED [None]
  - BLOOD LACTATE DEHYDROGENASE INCREASED [None]
  - HYPONATRAEMIA [None]
  - HYPOVOLAEMIA [None]
  - MOUTH ULCERATION [None]
  - PULMONARY OEDEMA [None]
  - RENAL FAILURE [None]
  - TOXIC EPIDERMAL NECROLYSIS [None]
